FAERS Safety Report 4932946-X (Version None)
Quarter: 2006Q1

REPORT INFORMATION
  Report Type: 
  Country: None (occurrence: None)
  Receive Date: 20060306
  Receipt Date: 20060220
  Transmission Date: 20060701
  Serious: Yes (Hospitalization)
  Sender: FDA-Public Use
  Company Number: PHEH2006US02369

PATIENT
  Age: 70 Year
  Sex: Female

DRUGS (3)
  1. LOTREL [Suspect]
     Indication: HYPERTENSION
     Dosage: 5/20MG
     Route: 048
  2. TOPROL-XL [Concomitant]
  3. AMIODARONE [Concomitant]

REACTIONS (4)
  - BLOOD PRESSURE INADEQUATELY CONTROLLED [None]
  - ELECTROCARDIOGRAM AMBULATORY ABNORMAL [None]
  - HEART RATE INCREASED [None]
  - PALPITATIONS [None]
